FAERS Safety Report 10485588 (Version 1)
Quarter: 2014Q4

REPORT INFORMATION
  Report Type: Report from Study
  Country: NL (occurrence: NL)
  Receive Date: 20141001
  Receipt Date: 20141001
  Transmission Date: 20150528
  Serious: Yes (Hospitalization)
  Sender: FDA-Public Use
  Company Number: NL-AMGEN-NLDSP2014073985

PATIENT
  Age: 65 Year
  Sex: Female

DRUGS (10)
  1. APROVEL [Concomitant]
     Active Substance: IRBESARTAN
  2. PARACETAMOL [Concomitant]
     Active Substance: ACETAMINOPHEN
  3. XGEVA [Suspect]
     Active Substance: DENOSUMAB
     Indication: PRODUCT USED FOR UNKNOWN INDICATION
     Dosage: 120 MG, Q4WK
     Route: 058
     Dates: start: 20140827
  4. METOPROLOL [Concomitant]
     Active Substance: METOPROLOL
  5. DICLOFENAC [Concomitant]
     Active Substance: DICLOFENAC
  6. ASCAL                              /00002702/ [Concomitant]
     Active Substance: ASPIRIN CALCIUM
  7. LERCANIDIPINE [Concomitant]
     Active Substance: LERCANIDIPINE
  8. OMEPRAZOL                          /00661201/ [Concomitant]
     Active Substance: OMEPRAZOLE
  9. SIMVASTATIN. [Concomitant]
     Active Substance: SIMVASTATIN
  10. ZOPICLON [Concomitant]
     Active Substance: ZOPICLONE

REACTIONS (2)
  - Diarrhoea [Unknown]
  - Dehydration [Unknown]
